FAERS Safety Report 19729572 (Version 1)
Quarter: 2021Q3

REPORT INFORMATION
  Report Type: Spontaneous
  Country: US (occurrence: US)
  Receive Date: 20210821
  Receipt Date: 20210821
  Transmission Date: 20211014
  Serious: No
  Sender: FDA-Public Use
  Company Number: US-SA-2021SA271253

PATIENT
  Age: 57 Year
  Sex: Female

DRUGS (1)
  1. LANTUS SOLOSTAR [Suspect]
     Active Substance: INSULIN GLARGINE
     Indication: TYPE 2 DIABETES MELLITUS
     Dosage: DRUG STRUCTURE DOSAGE : 20U QAM + 15 U QHS DRUG INTERVAL DOSAGE : BID DRUG TREATMENT DURATION: 1 MON
     Route: 065

REACTIONS (2)
  - Product use issue [Unknown]
  - Product lot number issue [Unknown]
